FAERS Safety Report 4359739-9 (Version None)
Quarter: 2004Q2

REPORT INFORMATION
  Report Type: 
  Country: None (occurrence: None)
  Receive Date: 20040518
  Receipt Date: 20040512
  Transmission Date: 20050107
  Serious: Yes (Death)
  Sender: FDA-Public Use
  Company Number: US-MERCK-0405USA00942

PATIENT

DRUGS (3)
  1. REMERON [Suspect]
     Route: 065
  2. SINGULAIR [Suspect]
     Indication: ASTHMA
     Route: 048
  3. EFFEXOR [Suspect]
     Route: 065

REACTIONS (1)
  - HEPATIC FAILURE [None]
